FAERS Safety Report 16290058 (Version 1)
Quarter: 2019Q2

REPORT INFORMATION
  Report Type: Spontaneous
  Country: US (occurrence: US)
  Receive Date: 20190404
  Receipt Date: 20190404
  Transmission Date: 20190711
  Serious: No
  Sender: FDA-Public Use
  Company Number: None

PATIENT
  Age: 70 Year
  Sex: Female
  Weight: 77.56 kg

DRUGS (5)
  1. REPATHA [Suspect]
     Active Substance: EVOLOCUMAB
     Indication: CEREBROVASCULAR DISORDER
     Dosage: ?          OTHER FREQUENCY:EVERY 2 WEEKS;?AS DIRECTED
     Route: 058
     Dates: start: 201804
  2. REPATHA [Suspect]
     Active Substance: EVOLOCUMAB
     Indication: CEREBRAL INFARCTION
     Dosage: ?          OTHER FREQUENCY:EVERY 2 WEEKS;?AS DIRECTED
     Route: 058
     Dates: start: 201804
  3. REPATHA [Suspect]
     Active Substance: EVOLOCUMAB
     Indication: ARTERIOSCLEROSIS
     Dosage: ?          OTHER FREQUENCY:EVERY 2 WEEKS;?AS DIRECTED
     Route: 058
     Dates: start: 201804
  4. REPATHA [Suspect]
     Active Substance: EVOLOCUMAB
     Indication: TRANSIENT ISCHAEMIC ATTACK
     Dosage: ?          OTHER FREQUENCY:EVERY 2 WEEKS;?AS DIRECTED
     Route: 058
     Dates: start: 201804
  5. REPATHA [Suspect]
     Active Substance: EVOLOCUMAB
     Indication: TYPE V HYPERLIPIDAEMIA
     Dosage: ?          OTHER FREQUENCY:EVERY 2 WEEKS;?AS DIRECTED
     Route: 058
     Dates: start: 201804

REACTIONS (2)
  - Muscle spasms [None]
  - Pain in extremity [None]
